FAERS Safety Report 10040024 (Version 3)
Quarter: 2014Q2

REPORT INFORMATION
  Report Type: Spontaneous
  Country: US (occurrence: US)
  Receive Date: 20140326
  Receipt Date: 20140423
  Transmission Date: 20141212
  Serious: Yes (Hospitalization, Congenital Anomaly)
  Sender: FDA-Public Use
  Company Number: US-MERCK-1403USA011724

PATIENT
  Age: 0 Day
  Sex: Male
  Weight: 2.92 kg

DRUGS (4)
  1. ISENTRESS [Suspect]
     Indication: HIV INFECTION
     Dosage: 800 MG, QD
     Route: 064
     Dates: start: 20131212
  2. COMBIVIR [Suspect]
     Indication: HIV INFECTION
     Dosage: 2 DF, UNK
     Route: 064
     Dates: start: 20131107
  3. NORVIR [Suspect]
     Indication: HIV INFECTION
     Dosage: 100 MG, QD
     Route: 064
     Dates: start: 20131107, end: 20131212
  4. REYATAZ [Suspect]
     Indication: HIV INFECTION
     Dosage: 300 MG, QD
     Route: 064
     Dates: start: 20131107, end: 20131212

REACTIONS (6)
  - Hydrocephalus [Unknown]
  - Supraventricular tachycardia [Recovering/Resolving]
  - Low set ears [Unknown]
  - Hypotonia [Recovering/Resolving]
  - Lid lag [Recovering/Resolving]
  - Foetal exposure during pregnancy [Unknown]
